FAERS Safety Report 10793640 (Version 2)
Quarter: 2015Q3

REPORT INFORMATION
  Report Type: Spontaneous
  Country: DE (occurrence: DE)
  Receive Date: 20150213
  Receipt Date: 20150702
  Transmission Date: 20151125
  Serious: Yes (Hospitalization)
  Sender: FDA-Public Use
  Company Number: DE-TEVA-539262GER

PATIENT
  Sex: Male

DRUGS (1)
  1. GABAPENTIN-RATIOPHARM 300 MG HARTKAPSELN [Suspect]
     Active Substance: GABAPENTIN
     Route: 042

REACTIONS (4)
  - Dizziness [Recovered/Resolved]
  - Asthenia [Recovered/Resolved]
  - Loss of consciousness [Recovered/Resolved]
  - Intentional product misuse [Unknown]
